FAERS Safety Report 9508038 (Version 1)
Quarter: 2013Q1

REPORT INFORMATION
  Report Type: Spontaneous
  Country: US (occurrence: None)
  Receive Date: 20130305
  Receipt Date: 20130305
  Transmission Date: 20140127
  Serious: Yes (Hospitalization)
  Sender: FDA-Public Use
  Company Number: 163-21880-12032875

PATIENT
  Age: 93 Year
  Sex: Female

DRUGS (14)
  1. REVLIMID [Suspect]
     Indication: MYELODYSPLASTIC SYNDROME
     Dosage: 1 IN 1 D
     Route: 048
     Dates: start: 200603, end: 2008
  2. TRANSFUSION (BLOOD AND RELATED PRODUCTS) [Concomitant]
  3. CALCIUM WITH VITAMIN D (CALCIUM WITH VITAMIN D) (TABLETS) [Concomitant]
  4. DIOVAN (VALSARTAN) (TABLETS) [Concomitant]
  5. NORVASC (AMLODIPINE BESILATE) (TABLETS) [Concomitant]
  6. POTASSIUM (POTASSIUM) [Concomitant]
  7. FOSAMAX (ALENDRONATE SODIUM) [Concomitant]
  8. COUMADIN (WARFARIN SODIUM) [Concomitant]
  9. VITAMIN D (ERGOCALCIFEROL) [Concomitant]
  10. TYLENOL (PARACETAMOL) [Concomitant]
  11. AMLODIPINE (AMLODIPINE) [Concomitant]
  12. LEVOTHYROXINE (LEVOTHYROXINE) [Concomitant]
  13. OS-CAL (OS-CAL) [Concomitant]
  14. GUAIFENESIN (GUAIFENESIN) [Concomitant]

REACTIONS (6)
  - Haematochezia [None]
  - Haemoglobin decreased [None]
  - Renal failure acute [None]
  - Anaemia [None]
  - Fatigue [None]
  - Drug effect decreased [None]
